FAERS Safety Report 10552478 (Version 1)
Quarter: 2014Q4

REPORT INFORMATION
  Report Type: Spontaneous
  Country: IT (occurrence: IT)
  Receive Date: 20141029
  Receipt Date: 20141029
  Transmission Date: 20150529
  Serious: Yes (Other)
  Sender: FDA-Public Use
  Company Number: IT-TEVA-517681ISR

PATIENT
  Age: 67 Year
  Sex: Male

DRUGS (2)
  1. FLUOROURACILE TEVA [Suspect]
     Active Substance: FLUOROURACIL
     Indication: RECTAL CANCER
     Dosage: 1860 MILLIGRAM DAILY;
     Route: 042
     Dates: start: 20140718, end: 20140901
  2. OXALIPLATINO SUN [Suspect]
     Active Substance: OXALIPLATIN
     Indication: RECTAL CANCER
     Dosage: 158.1 MILLIGRAM DAILY;
     Route: 042
     Dates: start: 20140818, end: 20140901

REACTIONS (4)
  - Loss of consciousness [Recovered/Resolved]
  - Presyncope [Recovered/Resolved]
  - Malaise [Recovered/Resolved]
  - Pulse absent [Recovered/Resolved]

NARRATIVE: CASE EVENT DATE: 20140901
